FAERS Safety Report 8814074 (Version 1)
Quarter: 2012Q4

REPORT INFORMATION
  Report Type: Spontaneous
  Country: US (occurrence: None)
  Receive Date: 20120926
  Receipt Date: 20120926
  Transmission Date: 20130627
  Serious: Yes (Other)
  Sender: FDA-Public Use
  Company Number: None

PATIENT
  Age: 30 Year
  Sex: Female
  Weight: 81.65 kg

DRUGS (1)
  1. MIRENA IUD [Suspect]
     Dosage: Every 5 years
     Route: 015
     Dates: start: 20101001, end: 20120828

REACTIONS (9)
  - Acne [None]
  - Palpitations [None]
  - Back pain [None]
  - Dyspareunia [None]
  - Mood swings [None]
  - Depression [None]
  - Irritability [None]
  - Weight increased [None]
  - Coital bleeding [None]
